FAERS Safety Report 7275735-6 (Version None)
Quarter: 2011Q1

REPORT INFORMATION
  Report Type: 
  Country: None (occurrence: None)
  Receive Date: 20110204
  Receipt Date: 20110126
  Transmission Date: 20110831
  Serious: Yes (Other)
  Sender: FDA-Public Use
  Company Number: GB-CEPHALON-2009009583

PATIENT
  Sex: Male

DRUGS (9)
  1. PROVIGIL [Suspect]
     Dosage: 300 MG TOTAL DAILY DOSE
     Route: 048
  2. PROVIGIL [Suspect]
     Dosage: 200 MG TOTAL DAILY DOSE
     Route: 048
  3. XALATAN [Concomitant]
     Indication: GLAUCOMA
  4. PROVIGIL [Suspect]
     Indication: HYPOSOMNIA
     Dosage: 200 MG TOTAL DAILY DOSE
     Route: 048
  5. PROVIGIL [Suspect]
     Dosage: 200 MG TOTAL DAILY DOSE
     Route: 048
  6. PROVIGIL [Suspect]
     Dosage: 400 MG TOTAL DAILY DOSE
     Route: 048
  7. PROVIGIL [Suspect]
     Dosage: 200 MG TOTAL DAILY DOSE
     Route: 048
  8. PROVIGIL [Suspect]
     Dosage: 300 MG TOTAL DAILY DOSE
     Route: 048
  9. COSOPT [Suspect]
     Indication: GLAUCOMA

REACTIONS (4)
  - DRUG INTERACTION [None]
  - GLOSSODYNIA [None]
  - DIARRHOEA [None]
  - RETINAL DETACHMENT [None]
